FAERS Safety Report 8115862-4 (Version None)
Quarter: 2011Q4

REPORT INFORMATION
  Report Type: 
  Country: None (occurrence: None)
  Receive Date: 20111227
  Receipt Date: 20111116
  Transmission Date: 20120403
  Serious: Yes (Other)
  Sender: FDA-Public Use
  Company Number: PHHY2011US33753

PATIENT
  Age: 47 Year
  Sex: Female
  Weight: 69.8 kg

DRUGS (5)
  1. DIAZEPAM [Concomitant]
  2. GILENYA [Suspect]
     Indication: MULTIPLE SCLEROSIS
     Dosage: 0.5 MG, QD, ORAL, 0.5 MG, QD, ORAL, 0.5 MG, QD, ORAL
     Route: 048
     Dates: start: 20110415, end: 20110509
  3. GILENYA [Suspect]
     Indication: MULTIPLE SCLEROSIS
     Dosage: 0.5 MG, QD, ORAL, 0.5 MG, QD, ORAL, 0.5 MG, QD, ORAL
     Route: 048
     Dates: start: 20110420
  4. GILENYA [Suspect]
     Indication: MULTIPLE SCLEROSIS
     Dosage: 0.5 MG, QD, ORAL, 0.5 MG, QD, ORAL, 0.5 MG, QD, ORAL
     Route: 048
     Dates: start: 20110429, end: 20110509
  5. VENLAFAXINE [Concomitant]

REACTIONS (11)
  - INSOMNIA [None]
  - PYREXIA [None]
  - ASTHENIA [None]
  - DIZZINESS [None]
  - NAUSEA [None]
  - MEMORY IMPAIRMENT [None]
  - FATIGUE [None]
  - HEART RATE DECREASED [None]
  - AGEUSIA [None]
  - DYSSTASIA [None]
  - HEADACHE [None]
